FAERS Safety Report 25868239 (Version 2)
Quarter: 2025Q4

REPORT INFORMATION
  Report Type: Spontaneous
  Country: US (occurrence: US)
  Receive Date: 20251001
  Receipt Date: 20251017
  Transmission Date: 20260118
  Serious: Yes (Other)
  Sender: TEVA
  Company Number: US-TEVA-VS-3375400

PATIENT
  Age: 71 Year
  Sex: Male

DRUGS (9)
  1. BREXPIPRAZOLE [Suspect]
     Active Substance: BREXPIPRAZOLE
     Indication: Dementia Alzheimer^s type
     Dosage: RECEIVED INCREASED DOSE DURING BEDTIME
     Route: 065
  2. BREXPIPRAZOLE [Suspect]
     Active Substance: BREXPIPRAZOLE
     Indication: Dementia Alzheimer^s type
     Route: 065
  3. BREXPIPRAZOLE [Suspect]
     Active Substance: BREXPIPRAZOLE
     Indication: Dementia Alzheimer^s type
     Route: 065
     Dates: start: 2023
  4. ARIPIPRAZOLE [Suspect]
     Active Substance: ARIPIPRAZOLE
     Indication: Dementia Alzheimer^s type
     Route: 065
  5. MEMANTINE [Suspect]
     Active Substance: MEMANTINE
     Indication: Dementia Alzheimer^s type
     Route: 065
  6. DONEPEZIL [Suspect]
     Active Substance: DONEPEZIL
     Indication: Dementia Alzheimer^s type
     Dosage: REINITIATED DOSE NOT STATED
     Route: 065
     Dates: start: 2023
  7. DONEPEZIL [Suspect]
     Active Substance: DONEPEZIL
     Indication: Dementia Alzheimer^s type
     Route: 065
  8. CITALOPRAM [Suspect]
     Active Substance: CITALOPRAM
     Indication: Dementia Alzheimer^s type
     Dosage: INITIAL DOSE NOT STATED
     Route: 065
  9. CITALOPRAM [Suspect]
     Active Substance: CITALOPRAM
     Indication: Dementia Alzheimer^s type
     Dosage: DOSE INCREASED
     Route: 065

REACTIONS (3)
  - Electrocardiogram QT prolonged [Unknown]
  - Drug ineffective for unapproved indication [Unknown]
  - Off label use [Unknown]
